FAERS Safety Report 6536784-6 (Version None)
Quarter: 2010Q1

REPORT INFORMATION
  Report Type: 
  Country: None (occurrence: None)
  Receive Date: 20100106
  Receipt Date: 20091230
  Transmission Date: 20100710
  Serious: Yes (Death, Life-Threatening, Hospitalization)
  Sender: FDA-Public Use
  Company Number: 20097610

PATIENT
  Sex: Male

DRUGS (1)
  1. LIORESAL [Suspect]
     Indication: MUSCLE SPASTICITY
     Dosage: 400 MCG, DAILY, INTRATHECAL
     Route: 037

REACTIONS (6)
  - AUTONOMIC NERVOUS SYSTEM IMBALANCE [None]
  - CONDITION AGGRAVATED [None]
  - DEVICE CONNECTION ISSUE [None]
  - DYSTONIA [None]
  - RESPIRATORY FAILURE [None]
  - SCOLIOSIS [None]
